FAERS Safety Report 5349007-0 (Version None)
Quarter: 2007Q2

REPORT INFORMATION
  Report Type: 
  Country: None (occurrence: None)
  Receive Date: 20070516
  Receipt Date: 20070228
  Transmission Date: 20071010
  Serious: Yes (Other)
  Sender: FDA-Public Use
  Company Number: 200618692US

PATIENT
  Age: 65 Year
  Sex: Female

DRUGS (13)
  1. APIDRA [Suspect]
     Indication: DIABETES MELLITUS NON-INSULIN-DEPENDENT
     Dates: start: 20061019
  2. OPTICLIK [Suspect]
     Dates: start: 20061019
  3. ASPIRIN [Concomitant]
  4. CITALOPRAM HYDROBROMIDE (CELEXA /00582602/) [Concomitant]
  5. METFORMIN [Concomitant]
  6. ATORVASTATIN CALCIUM (LIPITOR) [Concomitant]
  7. METOPROLOL SUCCINATE [Concomitant]
  8. AMARYL [Concomitant]
  9. TRAMADOL HCL [Concomitant]
  10. TOCOPHERYL ACETATE (VITAMIN E) [Concomitant]
  11. CLOPIDOGREL (PLAVIX /01220701/) [Concomitant]
  12. ASCORBIC ACID, TOCOPHERYL ACETATE, RETINOL, ZINC, CALCIUM, VITAMINS NO [Concomitant]
  13. BYETTA [Concomitant]

REACTIONS (2)
  - BLOOD GLUCOSE INCREASED [None]
  - HYPERGLYCAEMIA [None]
